FAERS Safety Report 5143901-1 (Version None)
Quarter: 2006Q4

REPORT INFORMATION
  Report Type: 
  Country: None (occurrence: None)
  Receive Date: 20061102
  Receipt Date: 20061102
  Transmission Date: 20070319
  Serious: Yes (Hospitalization)
  Sender: FDA-Public Use
  Company Number: None

PATIENT
  Sex: Female
  Weight: 73.2 kg

DRUGS (11)
  1. CETUXIMAB [Suspect]
     Indication: BREAST CANCER METASTATIC
     Dosage: 250 MG/M2 IV BOLUS WEEKLY IV 040
     Route: 040
     Dates: start: 20060531, end: 20060811
  2. CARBOPLATIN [Suspect]
     Indication: BREAST CANCER METASTATIC
     Dosage: AUC-2 IV BOLUS 3 OUT OF 4 WEEKS IV 040
     Route: 042
     Dates: start: 20060728, end: 20060811
  3. LANTUS [Concomitant]
  4. DEXAMETHASONE TAB [Concomitant]
  5. DOCUSATE SODIUM [Concomitant]
  6. NOVOLOG COVERAGE [Concomitant]
  7. GLYBURIDE [Concomitant]
  8. TEMAZEPAM [Concomitant]
  9. PANTOPRAZOLE SODIUM [Concomitant]
  10. HEPARIN [Concomitant]
  11. TYLENOL [Concomitant]

REACTIONS (4)
  - ABASIA [None]
  - BLOOD GLUCOSE INCREASED [None]
  - DYSPNOEA [None]
  - METASTASES TO CENTRAL NERVOUS SYSTEM [None]
